FAERS Safety Report 9106216 (Version 2)
Quarter: 2013Q1

REPORT INFORMATION
  Report Type: Report from Study
  Country: DE (occurrence: DE)
  Receive Date: 20130221
  Receipt Date: 20130301
  Transmission Date: 20140127
  Serious: Yes (Hospitalization)
  Sender: FDA-Public Use
  Company Number: DE-TEVA-387215GER

PATIENT
  Age: 62 Year
  Sex: Female

DRUGS (6)
  1. TRISENOX [Suspect]
     Indication: ACUTE PROMYELOCYTIC LEUKAEMIA
     Dosage: 10 MILLIGRAM DAILY;
     Route: 042
     Dates: start: 20090529
  2. VESANOID [Suspect]
     Indication: ACUTE PROMYELOCYTIC LEUKAEMIA
     Dosage: 80 MILLIGRAM DAILY;
     Route: 048
     Dates: start: 20090529
  3. CEFOTRIX [Concomitant]
  4. ACIC [Concomitant]
  5. GENTAMICIN [Concomitant]
  6. COTRIM [Concomitant]

REACTIONS (1)
  - Hydrocephalus [Unknown]
